FAERS Safety Report 6501116-6 (Version None)
Quarter: 2009Q4

REPORT INFORMATION
  Report Type: 
  Country: None (occurrence: None)
  Receive Date: 20091216
  Receipt Date: 20090724
  Transmission Date: 20100525
  Serious: No
  Sender: FDA-Public Use
  Company Number: A0798571A

PATIENT
  Age: 47 Year
  Sex: Female

DRUGS (4)
  1. NICOTINE POLACRILEX [Suspect]
     Indication: SMOKING CESSATION THERAPY
     Route: 048
     Dates: start: 20090724
  2. BENADRYL [Concomitant]
     Indication: MULTIPLE ALLERGIES
  3. BENAZEPRIL HYDROCHLORIDE [Concomitant]
     Indication: HYPERTENSION
  4. CARVEDILOL [Concomitant]
     Indication: HYPERTENSION

REACTIONS (3)
  - DRUG ADMINISTRATION ERROR [None]
  - OROPHARYNGEAL PAIN [None]
  - THROAT IRRITATION [None]
